FAERS Safety Report 17145762 (Version 1)
Quarter: 2019Q4

REPORT INFORMATION
  Report Type: Spontaneous
  Country: NL (occurrence: NL)
  Receive Date: 20191212
  Receipt Date: 20191212
  Transmission Date: 20200122
  Serious: Yes (Hospitalization)
  Sender: FDA-Public Use
  Company Number: NL-TEVA-2019-NL-1149794

PATIENT
  Age: 32 Year
  Sex: Female
  Weight: 52 kg

DRUGS (1)
  1. BUPROPION TABLET MET GEREGULEERDE AFGIFTE, 150 MG (MILLIGRAM) [Suspect]
     Active Substance: BUPROPION
     Indication: ANXIETY
     Dosage: 150MG 1X/DAY
     Dates: start: 2019, end: 2019

REACTIONS (2)
  - Agitation [Recovering/Resolving]
  - Psychomotor hyperactivity [Recovering/Resolving]

NARRATIVE: CASE EVENT DATE: 20191110
